FAERS Safety Report 9217491 (Version 1)
Quarter: 2013Q2

REPORT INFORMATION
  Report Type: Spontaneous
  Country: US (occurrence: US)
  Receive Date: 20130408
  Receipt Date: 20130408
  Transmission Date: 20140414
  Serious: Yes (Hospitalization)
  Sender: FDA-Public Use
  Company Number: US-ASTRAZENECA-2013SE21212

PATIENT
  Age: 21 Month
  Sex: Male
  Weight: 9.5 kg

DRUGS (7)
  1. SYNAGIS [Suspect]
     Route: 030
  2. ALBUTEROL [Concomitant]
  3. BUDESONIDE [Concomitant]
     Dosage: 0.25 MG/2
  4. POLYVITAMIN [Concomitant]
  5. VITAMIN D [Concomitant]
     Dosage: 400 UNIT
  6. ZANTAC [Concomitant]
     Dosage: 15 MG/ML
  7. NEBUSAL [Concomitant]

REACTIONS (3)
  - Dyspnoea [Unknown]
  - Use of accessory respiratory muscles [Unknown]
  - Nasopharyngitis [Unknown]
